FAERS Safety Report 7268976-5 (Version None)
Quarter: 2011Q1

REPORT INFORMATION
  Report Type: 
  Country: None (occurrence: None)
  Receive Date: 20110201
  Receipt Date: 20101014
  Transmission Date: 20110831
  Serious: Yes (Disabling)
  Sender: FDA-Public Use
  Company Number: US-BAYER-201025126NA

PATIENT
  Sex: Female
  Weight: 75 kg

DRUGS (5)
  1. AVELOX [Suspect]
     Indication: DYSPNOEA
  2. UNCODEABLE ^UNCLASSIFIABLE^ [Concomitant]
     Indication: SINUSITIS
     Dates: start: 20091121
  3. AVELOX [Suspect]
     Indication: UPPER RESPIRATORY TRACT INFECTION
     Dosage: NDC#00085-1733-01
     Route: 048
     Dates: start: 20090310, end: 20090101
  4. AVELOX [Suspect]
     Indication: COUGH
  5. ALBUTEROL [Concomitant]
     Indication: ASTHMA

REACTIONS (10)
  - PAIN IN EXTREMITY [None]
  - PARAESTHESIA [None]
  - HEADACHE [None]
  - HYPOAESTHESIA [None]
  - GAIT DISTURBANCE [None]
  - EXTRAOCULAR MUSCLE PARESIS [None]
  - NECK PAIN [None]
  - TENDON DISORDER [None]
  - VISUAL IMPAIRMENT [None]
  - MUSCULOSKELETAL PAIN [None]
